FAERS Safety Report 9585784 (Version 2)
Quarter: 2013Q4

REPORT INFORMATION
  Report Type: Spontaneous
  Country: GB (occurrence: GB)
  Receive Date: 20131003
  Receipt Date: 20131017
  Transmission Date: 20140711
  Serious: Yes (Death, Hospitalization)
  Sender: FDA-Public Use
  Company Number: US-BRISTOL-MYERS SQUIBB COMPANY-19445527

PATIENT
  Sex: Female

DRUGS (1)
  1. APIXABAN [Suspect]

REACTIONS (3)
  - Death [Fatal]
  - Convulsion [Unknown]
  - Acute coronary syndrome [Unknown]
